FAERS Safety Report 18361717 (Version 3)
Quarter: 2021Q1

REPORT INFORMATION
  Report Type: Spontaneous
  Country: US (occurrence: US)
  Receive Date: 20201008
  Receipt Date: 20210208
  Transmission Date: 20210419
  Serious: Yes (Hospitalization, Disabling, Other)
  Sender: FDA-Public Use
  Company Number: US-TEVA-2020-US-1835655

PATIENT
  Sex: Male
  Weight: 125.6 kg

DRUGS (12)
  1. LOSARTAN TEVA [Suspect]
     Active Substance: LOSARTAN
     Indication: HYPERTENSION
     Route: 048
     Dates: start: 20150623
  2. TERAZOSIN HCL [Concomitant]
     Active Substance: TERAZOSIN HYDROCHLORIDE
     Indication: BENIGN PROSTATIC HYPERPLASIA
     Dates: start: 201101, end: 201908
  3. NEXIUM [Concomitant]
     Active Substance: ESOMEPRAZOLE MAGNESIUM
     Indication: GASTROOESOPHAGEAL REFLUX DISEASE
     Dates: start: 20100218, end: 201705
  4. LOSARTAN GOLDEN STATE MEDICAL SUPPLY [Suspect]
     Active Substance: LOSARTAN
     Indication: HYPERTENSION
     Route: 048
     Dates: start: 20050902, end: 20170506
  5. LOSARTAN CAMBER PHARMACEUTICAS [Suspect]
     Active Substance: LOSARTAN
     Indication: HYPERTENSION
     Route: 048
     Dates: start: 20180506
  6. LOSARTAN CAMBER PHARMACEUTICAS [Suspect]
     Active Substance: LOSARTAN
     Route: 048
     Dates: start: 20181102
  7. LOSARTAN CAMBER PHARMACEUTICAS [Suspect]
     Active Substance: LOSARTAN
     Route: 048
     Dates: start: 20180804
  8. LOSARTAN GOLDEN STATE MEDICAL SUPPLY [Suspect]
     Active Substance: LOSARTAN
     Route: 048
     Dates: start: 20170806, end: 20180506
  9. LOSARTAN AUROBINDO PHARMA LIMITE [Suspect]
     Active Substance: LOSARTAN
     Indication: HYPERTENSION
     Route: 048
     Dates: start: 20180417
  10. AZITHROMYCIN ANHYDROUS. [Concomitant]
     Active Substance: AZITHROMYCIN ANHYDROUS
     Indication: NASOPHARYNGITIS
     Dates: start: 201003, end: 201806
  11. LOSARTAN TEVA [Suspect]
     Active Substance: LOSARTAN
     Route: 048
     Dates: start: 20170508
  12. LOSARTAN TORRENT PHARMACEUTICALS [Suspect]
     Active Substance: LOSARTAN
     Indication: HYPERTENSION
     Route: 048
     Dates: start: 20190131, end: 20190501

REACTIONS (1)
  - Chronic lymphocytic leukaemia [Not Recovered/Not Resolved]
